FAERS Safety Report 25141178 (Version 1)
Quarter: 2025Q1

REPORT INFORMATION
  Report Type: Spontaneous
  Country: US (occurrence: None)
  Receive Date: 20250329
  Receipt Date: 20250329
  Transmission Date: 20250409
  Serious: Yes (Disabling)
  Sender: FDA-CTU
  Company Number: None

PATIENT
  Age: 27 Year
  Sex: Male
  Weight: 76.5 kg

DRUGS (4)
  1. AIRSUPRA [Suspect]
     Active Substance: ALBUTEROL SULFATE\BUDESONIDE
     Indication: Asthma
     Dates: start: 20250321, end: 20250324
  2. ALBUTEROL [Concomitant]
     Active Substance: ALBUTEROL
  3. ADDERALL [Concomitant]
     Active Substance: AMPHETAMINE ASPARTATE\AMPHETAMINE SULFATE\DEXTROAMPHETAMINE SACCHARATE\DEXTROAMPHETAMINE SULFATE
  4. Generic allergy medication [Concomitant]

REACTIONS (3)
  - Diplopia [None]
  - Vision blurred [None]
  - Photophobia [None]

NARRATIVE: CASE EVENT DATE: 20250321
